FAERS Safety Report 19810641 (Version 3)
Quarter: 2021Q4

REPORT INFORMATION
  Report Type: Spontaneous
  Country: IN (occurrence: IN)
  Receive Date: 20210909
  Receipt Date: 20211126
  Transmission Date: 20220303
  Serious: Yes (Other)
  Sender: FDA-Public Use
  Company Number: IN-PFIZER INC-2021207043

PATIENT
  Age: 46 Year
  Sex: Female
  Weight: 47 kg

DRUGS (3)
  1. PALBOCICLIB [Suspect]
     Active Substance: PALBOCICLIB
     Indication: Breast cancer metastatic
     Dosage: 125 MG, 1X/DAY (21 DAYS)
     Route: 048
     Dates: start: 20210119
  2. OSTEOFOS [Concomitant]
     Dosage: 70 MG, WEEKLY (ONCE WEEKLY )
  3. LETROZOLE [Concomitant]
     Active Substance: LETROZOLE
     Dosage: 1 DF, 1X/DAY

REACTIONS (7)
  - Haemoglobin increased [Unknown]
  - Neutrophil count decreased [Unknown]
  - Blood pressure increased [Unknown]
  - White blood cell count decreased [Unknown]
  - Haemoglobin decreased [Unknown]
  - Platelet count decreased [Unknown]
  - Off label use [Unknown]

NARRATIVE: CASE EVENT DATE: 20210309
